FAERS Safety Report 10404480 (Version 1)
Quarter: 2014Q1

REPORT INFORMATION
  Report Type: Spontaneous
  Country: US (occurrence: None)
  Receive Date: 20140306
  Receipt Date: 20140306
  Transmission Date: 20141002
  Serious: Yes (Other)
  Sender: FDA-Public Use
  Company Number: 163-21880-1201880

PATIENT
  Age: 52 Year
  Sex: Male
  Weight: 82.56 kg

DRUGS (7)
  1. REVLIMID (LENALIDOMIDE) (10 MILLIGRAM, CAPSULES) [Suspect]
     Indication: PLASMA CELL MYELOMA
     Dosage: 10 MG, 1 IN 1 D, PO
     Route: 048
     Dates: start: 20110512
  2. GABAPENTIN (GABAPENTIN) [Concomitant]
  3. ACYCLOVIR (ACICLOVIR) [Concomitant]
  4. MULTIVITAMINS (MULTIVITAMINS) [Concomitant]
  5. OXYCODONE (OXYCODONE) [Concomitant]
  6. ASA LO DOSE (ACETYLSALICYLIC ACID) [Concomitant]
  7. IBUPROFEN (IBUPROFEN) [Concomitant]

REACTIONS (4)
  - Hypersomnia [None]
  - Fatigue [None]
  - Dysphonia [None]
  - Drug dose omission [None]
